FAERS Safety Report 6691916-4 (Version None)
Quarter: 2010Q2

REPORT INFORMATION
  Report Type: 
  Country: None (occurrence: None)
  Receive Date: 20100422
  Receipt Date: 20090429
  Transmission Date: 20101027
  Serious: No
  Sender: FDA-Public Use
  Company Number: US-ASTRAZENECA-2009UW10671

PATIENT
  Age: 53 Year
  Sex: Male
  Weight: 68 kg

DRUGS (7)
  1. TOPROL-XL [Suspect]
     Indication: HYPERTENSION
     Route: 048
  2. TOPROL-XL [Suspect]
     Indication: ANGINA PECTORIS
     Route: 048
  3. TOPROL-XL [Suspect]
     Route: 048
  4. TOPROL-XL [Suspect]
     Route: 048
  5. PRILOSEC [Concomitant]
  6. FLOMAX [Concomitant]
  7. GLYBURIDE [Concomitant]

REACTIONS (3)
  - HYPOAESTHESIA [None]
  - MEDICATION ERROR [None]
  - PARAESTHESIA [None]
